FAERS Safety Report 21859204 (Version 1)
Quarter: 2023Q1

REPORT INFORMATION
  Report Type: Spontaneous
  Country: CA (occurrence: CA)
  Receive Date: 20230113
  Receipt Date: 20230113
  Transmission Date: 20230417
  Serious: Yes (Other)
  Sender: FDA-Public Use
  Company Number: None

PATIENT
  Age: 45 Year
  Sex: Female

DRUGS (2)
  1. METHOTREXATE [Suspect]
     Active Substance: METHOTREXATE
     Indication: Colitis ulcerative
     Dosage: 1 EVERY 1 WEEKS
     Route: 048
  2. PREDNISONE [Concomitant]
     Active Substance: PREDNISONE

REACTIONS (6)
  - Abdominal tenderness [Unknown]
  - Colitis [Unknown]
  - Diarrhoea [Unknown]
  - Diarrhoea haemorrhagic [Unknown]
  - Drug ineffective [Unknown]
  - Off label use [Unknown]
